APPROVED DRUG PRODUCT: DISULFIRAM
Active Ingredient: DISULFIRAM
Strength: 500MG
Dosage Form/Route: TABLET;ORAL
Application: A091563 | Product #002 | TE Code: AB
Applicant: CHARTWELL MOLECULES LLC
Approved: Dec 31, 2012 | RLD: No | RS: Yes | Type: RX